FAERS Safety Report 26046108 (Version 2)
Quarter: 2025Q4

REPORT INFORMATION
  Report Type: Spontaneous
  Country: EU (occurrence: EU)
  Receive Date: 20251114
  Receipt Date: 20251122
  Transmission Date: 20260117
  Serious: Yes (Death, Life-Threatening, Hospitalization)
  Sender: BOEHRINGER INGELHEIM
  Company Number: EU-BoehringerIngelheim-2025-BI-107201

PATIENT
  Age: 77 Year
  Sex: Male

DRUGS (1)
  1. DABIGATRAN [Suspect]
     Active Substance: DABIGATRAN
     Indication: Atrial fibrillation

REACTIONS (5)
  - Post procedural infection [Fatal]
  - Septic shock [Fatal]
  - Metabolic acidosis [Not Recovered/Not Resolved]
  - Disseminated intravascular coagulation [Unknown]
  - Pneumococcal infection [Unknown]
